FAERS Safety Report 23851728 (Version 1)
Quarter: 2024Q2

REPORT INFORMATION
  Report Type: Report from Study
  Country: US (occurrence: US)
  Receive Date: 20240514
  Receipt Date: 20240514
  Transmission Date: 20240716
  Serious: Yes (Other)
  Sender: FDA-Public Use
  Company Number: US-ABBVIE-5752334

PATIENT
  Sex: Female
  Weight: 61.234 kg

DRUGS (3)
  1. SKYRIZI [Suspect]
     Active Substance: RISANKIZUMAB-RZAA
     Indication: Psoriasis
     Dosage: FORM STRENGTH: 150 MILLIGRAM
     Route: 058
     Dates: start: 2021
  2. ZOLOFT [Concomitant]
     Active Substance: SERTRALINE HYDROCHLORIDE
     Indication: Product used for unknown indication
  3. OMEPRAZOLE [Concomitant]
     Active Substance: DONEPEZIL HYDROCHLORIDE\OMEPRAZOLE\OMEPRAZOLE MAGNESIUM
     Indication: Hyperchlorhydria

REACTIONS (5)
  - Precancerous cells present [Not Recovered/Not Resolved]
  - Limb mass [Unknown]
  - Rash [Recovered/Resolved]
  - Oedema peripheral [Recovered/Resolved]
  - Precancerous cells present [Not Recovered/Not Resolved]

NARRATIVE: CASE EVENT DATE: 20230101
